FAERS Safety Report 8115016-1 (Version None)
Quarter: 2012Q1

REPORT INFORMATION
  Report Type: 
  Country: None (occurrence: None)
  Receive Date: 20120206
  Receipt Date: 20120202
  Transmission Date: 20120608
  Serious: Yes (Death)
  Sender: FDA-Public Use
  Company Number: AU-PFIZER INC-2012028161

PATIENT
  Age: 60 Year
  Sex: Female

DRUGS (6)
  1. ERAXIS [Suspect]
     Indication: ENDOCARDITIS CANDIDA
  2. AMBISOME [Suspect]
     Indication: ENDOCARDITIS CANDIDA
  3. ACETYLSALICYLIC ACID [Concomitant]
  4. IRON [Concomitant]
  5. OXYPENTIFYLLINE [Concomitant]
  6. CASPOFUNGIN [Suspect]
     Indication: ENDOCARDITIS CANDIDA
     Dosage: UNK

REACTIONS (1)
  - BLOOD BILIRUBIN INCREASED [None]
